FAERS Safety Report 19058005 (Version 2)
Quarter: 2021Q3

REPORT INFORMATION
  Report Type: Spontaneous
  Country: US (occurrence: US)
  Receive Date: 20210324
  Receipt Date: 20210802
  Transmission Date: 20211014
  Serious: Yes (Other)
  Sender: FDA-Public Use
  Company Number: US-TEVA-2021-US-1893796

PATIENT
  Age: 5 Decade
  Sex: Female

DRUGS (7)
  1. MYCOPHENOLATE MOFETIL. [Suspect]
     Active Substance: MYCOPHENOLATE MOFETIL
     Indication: OCULAR SARCOIDOSIS
     Dosage: 2000 MILLIGRAM DAILY;
     Route: 065
     Dates: start: 200602
  2. AZATHIOPRINE. [Suspect]
     Active Substance: AZATHIOPRINE
     Indication: OCULAR SARCOIDOSIS
     Route: 065
  3. PREDNISONE. [Suspect]
     Active Substance: PREDNISONE
     Dosage: 35 MILLIGRAM DAILY;
     Route: 048
     Dates: start: 2005
  4. PREDNISONE. [Suspect]
     Active Substance: PREDNISONE
     Dosage: 20 MILLIGRAM DAILY;
     Route: 048
     Dates: start: 2006
  5. PREDNISONE. [Suspect]
     Active Substance: PREDNISONE
     Dosage: 12.5 MILLIGRAM DAILY; FROM OCTOBER TO DECEMBER, THE PREDNISONE WAS SLOWLY TAPERED DOWN
     Route: 048
     Dates: start: 2005
  6. PREDNISONE. [Suspect]
     Active Substance: PREDNISONE
     Indication: OCULAR SARCOIDOSIS
     Route: 048
     Dates: start: 199602
  7. AZATHIOPRINE. [Suspect]
     Active Substance: AZATHIOPRINE
     Dosage: 150 MILLIGRAM DAILY;
     Route: 065
     Dates: start: 2005, end: 200510

REACTIONS (5)
  - Rebound effect [Recovered/Resolved]
  - Cushingoid [Unknown]
  - Glaucoma [Unknown]
  - Drug ineffective [Unknown]
  - Weight increased [Unknown]
